FAERS Safety Report 10550954 (Version 1)
Quarter: 2014Q4

REPORT INFORMATION
  Report Type: Spontaneous
  Country: US (occurrence: None)
  Receive Date: 20141028
  Receipt Date: 20141028
  Transmission Date: 20150529
  Serious: No
  Sender: FDA-Public Use
  Company Number: None

PATIENT
  Age: 62 Year
  Sex: Female
  Weight: 90.72 kg

DRUGS (1)
  1. BELVIQ [Suspect]
     Active Substance: LORCASERIN HYDROCHLORIDE
     Indication: WEIGHT CONTROL
     Dosage: 2 PILLS
     Dates: start: 20141014

REACTIONS (5)
  - Euphoric mood [None]
  - Balance disorder [None]
  - Fatigue [None]
  - Hypersomnia [None]
  - Dysstasia [None]

NARRATIVE: CASE EVENT DATE: 20141016
